FAERS Safety Report 4954494-3 (Version None)
Quarter: 2006Q1

REPORT INFORMATION
  Report Type: 
  Country: None (occurrence: None)
  Receive Date: 20060322
  Receipt Date: 20060308
  Transmission Date: 20060701
  Serious: Yes (Other)
  Sender: FDA-Public Use
  Company Number: 2006026187

PATIENT
  Age: 79 Year
  Sex: Female

DRUGS (9)
  1. SOLU-MEDROL [Suspect]
     Indication: ASTHMA
     Dosage: 80 MG (40 MG, 2 IN 1 D), INTRAVENOUS
     Route: 042
     Dates: start: 20060130, end: 20060218
  2. DILTIAZEM HYDROCHLORIDE [Suspect]
     Indication: HYPERTENSION
     Dosage: 200 MG (100 MG, 2 IN 1 D), ORAL
     Route: 048
     Dates: start: 20060207
  3. CONIEL (BENIDIPINE HYDROCHLORIDE) [Concomitant]
  4. FAMOTIDINE [Concomitant]
  5. NITRODERM TTS (GLYCERYL TRINITTRATE) [Concomitant]
  6. ALLOPURINOL [Concomitant]
  7. QVAR (BECLOMETASONE DIPROPIONATE) [Concomitant]
  8. AMINOPHYLLIN [Concomitant]
  9. HOKUNALIN (TULOBUTEROL HYDROCHLORIDE) [Concomitant]

REACTIONS (7)
  - BLOOD CREATINE PHOSPHOKINASE INCREASED [None]
  - BLOOD POTASSIUM DECREASED [None]
  - BRAIN NATRIURETIC PEPTIDE INCREASED [None]
  - FACE OEDEMA [None]
  - OEDEMA PERIPHERAL [None]
  - PROTEIN URINE PRESENT [None]
  - WEIGHT INCREASED [None]
